FAERS Safety Report 6583291-0 (Version None)
Quarter: 2010Q1

REPORT INFORMATION
  Report Type: 
  Country: None (occurrence: None)
  Receive Date: 20100216
  Receipt Date: 20100208
  Transmission Date: 20100710
  Serious: Yes (Hospitalization)
  Sender: FDA-Public Use
  Company Number: B0633790A

PATIENT
  Age: 18 Year
  Sex: Female

DRUGS (1)
  1. LAMOTRIGINE [Suspect]

REACTIONS (8)
  - DRUG ERUPTION [None]
  - DRUG HYPERSENSITIVITY [None]
  - GENERALISED ERYTHEMA [None]
  - INFECTIOUS MONONUCLEOSIS [None]
  - NIKOLSKY'S SIGN [None]
  - PAIN [None]
  - PHARYNGITIS [None]
  - SKIN LESION [None]
